FAERS Safety Report 7827070-2 (Version None)
Quarter: 2011Q4

REPORT INFORMATION
  Report Type: 
  Country: None (occurrence: None)
  Receive Date: 20111020
  Receipt Date: 20111011
  Transmission Date: 20120403
  Serious: Yes (Hospitalization, Other)
  Sender: FDA-Public Use
  Company Number: TW-JNJFOC-20110811642

PATIENT
  Age: 41 Year
  Sex: Male
  Weight: 61.5 kg

DRUGS (2)
  1. INVEGA [Suspect]
     Indication: SCHIZOPHRENIA
     Route: 048
     Dates: start: 20110419
  2. SLEEPING PILL NOS [Suspect]
     Indication: SLEEP DISORDER
     Route: 065

REACTIONS (4)
  - HYPONATRAEMIA [None]
  - HYPOKALAEMIA [None]
  - CONVULSION [None]
  - POLYDIPSIA [None]
